FAERS Safety Report 12447669 (Version 1)
Quarter: 2016Q2

REPORT INFORMATION
  Report Type: Spontaneous
  Country: GB (occurrence: GB)
  Receive Date: 20160608
  Receipt Date: 20160608
  Transmission Date: 20160815
  Serious: Yes (Other)
  Sender: FDA-Public Use
  Company Number: GB-BAYER-2016-110462

PATIENT
  Age: 19 Year
  Sex: Male
  Weight: 82.55 kg

DRUGS (1)
  1. NAPROXEN SODIUM ({= 220 MG) [Suspect]
     Active Substance: NAPROXEN SODIUM
     Indication: ANTIINFLAMMATORY THERAPY
     Dosage: 250 MG, TID
     Route: 048
     Dates: start: 20160518, end: 20160522

REACTIONS (7)
  - Rash pustular [Unknown]
  - Rash [Not Recovered/Not Resolved]
  - Constipation [Recovered/Resolved]
  - Sleep disorder [Recovered/Resolved]
  - Gastrooesophageal reflux disease [Recovering/Resolving]
  - Renal pain [Not Recovered/Not Resolved]
  - Palpitations [Recovered/Resolved]

NARRATIVE: CASE EVENT DATE: 20160518
